FAERS Safety Report 8783370 (Version 1)
Quarter: 2012Q4

REPORT INFORMATION
  Report Type: Report from Study
  Country: US (occurrence: US)
  Receive Date: 20120913
  Receipt Date: 20120913
  Transmission Date: 20130627
  Serious: No
  Sender: FDA-Public Use
  Company Number: US-VERTEX PHARMACEUTICAL INC.-AE-2012-009059

PATIENT
  Sex: Female

DRUGS (9)
  1. INCIVEK [Suspect]
     Indication: HEPATITIS C
     Route: 048
     Dates: start: 2012
  2. RIBAPAK [Concomitant]
     Indication: HEPATITIS C
     Dates: start: 2012
  3. PEGASYS [Concomitant]
     Indication: HEPATITIS C
     Route: 058
     Dates: start: 2012
  4. AMLODIPINE BESYLATE [Concomitant]
  5. AMLODIPINE BESYLATE [Concomitant]
  6. CARISOPRODOL [Concomitant]
  7. CARISOPRODOL [Concomitant]
  8. ENDOCET [Concomitant]
  9. ENDOCET [Concomitant]

REACTIONS (1)
  - Drug ineffective [Unknown]
